FAERS Safety Report 10760600 (Version 4)
Quarter: 2016Q2

REPORT INFORMATION
  Report Type: Spontaneous
  Country: CA (occurrence: CA)
  Receive Date: 20150204
  Receipt Date: 20160428
  Transmission Date: 20160815
  Serious: Yes (Hospitalization)
  Sender: FDA-Public Use
  Company Number: CA-ROCHE-1532011

PATIENT
  Age: 56 Year
  Sex: Female

DRUGS (10)
  1. COPEGUS [Suspect]
     Active Substance: RIBAVIRIN
     Indication: CHRONIC HEPATITIS C
     Route: 048
     Dates: start: 20140719, end: 20140827
  2. GALEXOS [Suspect]
     Active Substance: SIMEPREVIR
     Indication: CHRONIC HEPATITIS C
     Dosage: THERAPY DURATION: 18 DAYS
     Route: 048
     Dates: end: 20140827
  3. SOVALDI [Suspect]
     Active Substance: SOFOSBUVIR
     Indication: CHRONIC HEPATITIS C
     Dosage: UNKNOWN START DATE
     Route: 048
     Dates: end: 20140827
  4. IBAVYR [Suspect]
     Active Substance: RIBAVIRIN
     Indication: HEPATITIS C
     Route: 048
     Dates: start: 20140719, end: 20140827
  5. PEGETRON [Suspect]
     Active Substance: PEGINTERFERON ALFA-2B\RIBAVIRIN
     Route: 048
  6. METFORMIN [Concomitant]
     Active Substance: METFORMIN HYDROCHLORIDE
  7. NADOLOL. [Concomitant]
     Active Substance: NADOLOL
  8. PEGETRON [Suspect]
     Active Substance: PEGINTERFERON ALFA-2B\RIBAVIRIN
     Indication: CHRONIC HEPATITIS C
     Route: 048
  9. PEGASYS [Suspect]
     Active Substance: PEGINTERFERON ALFA-2A
     Indication: CHRONIC HEPATITIS C
     Route: 058
     Dates: end: 20140827
  10. BISACODYL. [Concomitant]
     Active Substance: BISACODYL

REACTIONS (13)
  - Hepatic failure [Not Recovered/Not Resolved]
  - Off label use [Unknown]
  - Hepatorenal syndrome [Not Recovered/Not Resolved]
  - Urinary tract infection [Not Recovered/Not Resolved]
  - Renal failure [Not Recovered/Not Resolved]
  - Renal failure [Unknown]
  - Abdominal pain [Unknown]
  - Blood test abnormal [Unknown]
  - Portal vein thrombosis [Not Recovered/Not Resolved]
  - Hepatic failure [Unknown]
  - Blood test abnormal [Not Recovered/Not Resolved]
  - Hepatic function abnormal [Unknown]
  - Abdominal pain [Not Recovered/Not Resolved]
